FAERS Safety Report 4510836-4 (Version None)
Quarter: 2004Q4

REPORT INFORMATION
  Report Type: 
  Country: None (occurrence: None)
  Receive Date: 20041025
  Receipt Date: 20040625
  Transmission Date: 20050328
  Serious: Yes (Other)
  Sender: FDA-Public Use
  Company Number: NSADSS2003009154

PATIENT
  Age: 27 Year

DRUGS (3)
  1. REMICADE [Suspect]
     Indication: PSORIATIC ARTHROPATHY
     Dosage: 1 IN 1 AS NECESSARY, INTRAVENOUS DRIP
     Route: 041
     Dates: start: 20010101
  2. METHOTREXATE [Concomitant]
  3. CELEBREX [Concomitant]

REACTIONS (2)
  - HEPATITIS [None]
  - URTICARIA [None]
